FAERS Safety Report 7943743-5 (Version None)
Quarter: 2011Q4

REPORT INFORMATION
  Report Type: 
  Country: None (occurrence: None)
  Receive Date: 20111128
  Receipt Date: 20111116
  Transmission Date: 20120403
  Serious: Yes (Hospitalization)
  Sender: FDA-Public Use
  Company Number: FR-PFIZER INC-2011286678

PATIENT
  Age: 79 Year
  Sex: Male

DRUGS (7)
  1. LANTUS [Concomitant]
     Dosage: 16 IU, DAILY
  2. RAMIPRIL [Concomitant]
     Dosage: 1.25 MG, DAILY
  3. DIGOXIN [Concomitant]
     Dosage: 0.125 MG, DAILY
  4. CORDARONE [Suspect]
     Indication: PRODUCT USED FOR UNKNOWN INDICATION
     Dosage: 200 MG, 5/7 DAYS
     Route: 048
  5. LASIX [Concomitant]
     Dosage: 40 MG, DAILY
  6. PREVISCAN [Suspect]
     Indication: ATRIAL FIBRILLATION
     Dosage: 5 MG, DAILY
     Route: 048
  7. PROSCAR [Concomitant]
     Dosage: 5 MG, DAILY

REACTIONS (2)
  - EPISTAXIS [None]
  - RED BLOOD CELL COUNT DECREASED [None]
